FAERS Safety Report 17219848 (Version 1)
Quarter: 2019Q4

REPORT INFORMATION
  Report Type: Spontaneous
  Country: ES (occurrence: ES)
  Receive Date: 20191231
  Receipt Date: 20191231
  Transmission Date: 20200122
  Serious: Yes (Hospitalization)
  Sender: FDA-Public Use
  Company Number: ES-MYLANLABS-2019M1132306

PATIENT
  Age: 3 Year
  Sex: Female

DRUGS (3)
  1. MIDAZOLAM [Suspect]
     Active Substance: MIDAZOLAM HYDROCHLORIDE
     Indication: POSTOPERATIVE ANALGESIA
     Dosage: 0.2 MILLIGRAM/KILOGRAM, TOTAL (DU 0,2 MG/KG)
     Route: 042
     Dates: start: 20190201, end: 20190201
  2. FENTANILO                          /00174601/ [Suspect]
     Active Substance: FENTANYL
     Indication: ANALGESIC THERAPY
     Dosage: ANALGESIA CONTROLLED BY PATIENT
     Route: 042
     Dates: start: 20190201, end: 20190201
  3. TRAMADOL. [Suspect]
     Active Substance: TRAMADOL
     Indication: POSTOPERATIVE ANALGESIA
     Dosage: DU 0.7MG/KG
     Route: 042
     Dates: start: 20190201, end: 20190201

REACTIONS (2)
  - Myoclonus [Recovered/Resolved]
  - Respiratory arrest [Recovered/Resolved with Sequelae]

NARRATIVE: CASE EVENT DATE: 20190201
